FAERS Safety Report 7720119-7 (Version None)
Quarter: 2011Q3

REPORT INFORMATION
  Report Type: 
  Country: None (occurrence: None)
  Receive Date: 20110831
  Receipt Date: 20110718
  Transmission Date: 20111222
  Serious: Yes (Disabling, Other)
  Sender: FDA-Public Use
  Company Number: US-TEVA-291061USA

PATIENT
  Sex: Female

DRUGS (1)
  1. CLONIDINE [Suspect]
     Dosage: .0286 MILLIGRAM;
     Route: 062

REACTIONS (7)
  - INJURY [None]
  - APPLICATION SITE SCAR [None]
  - BREAST INFECTION [None]
  - BREAST INFLAMMATION [None]
  - PAIN [None]
  - DEFORMITY [None]
  - APPLICATION SITE BURN [None]
